FAERS Safety Report 10856821 (Version 2)
Quarter: 2015Q1

REPORT INFORMATION
  Report Type: Spontaneous
  Country: FR (occurrence: FR)
  Receive Date: 20150223
  Receipt Date: 20150225
  Transmission Date: 20150721
  Serious: Yes (Death)
  Sender: FDA-Public Use
  Company Number: FR-ASTELLAS-2015US005716

PATIENT
  Sex: Male
  Weight: 1 kg

DRUGS (1)
  1. MYCAMINE [Suspect]
     Active Substance: MICAFUNGIN SODIUM
     Indication: CANDIDA INFECTION
     Route: 065

REACTIONS (3)
  - Overdose [Unknown]
  - Intentional product use issue [Unknown]
  - Death [Fatal]
